FAERS Safety Report 6608717-5 (Version None)
Quarter: 2010Q1

REPORT INFORMATION
  Report Type: 
  Country: None (occurrence: None)
  Receive Date: 20100301
  Receipt Date: 20100219
  Transmission Date: 20100710
  Serious: Yes (Other)
  Sender: FDA-Public Use
  Company Number: US-JNJCH-2010004749

PATIENT
  Sex: Female

DRUGS (1)
  1. PURELL UNSPECIFIED [Suspect]
     Indication: DRUG USE FOR UNKNOWN INDICATION
     Dosage: TEXT:UNSPECIFIED
     Route: 061

REACTIONS (4)
  - APPLICATION SITE BURN [None]
  - PAIN [None]
  - PRODUCT QUALITY ISSUE [None]
  - RASH [None]
